FAERS Safety Report 7496391-8 (Version None)
Quarter: 2011Q2

REPORT INFORMATION
  Report Type: 
  Country: None (occurrence: None)
  Receive Date: 20110523
  Receipt Date: 20110518
  Transmission Date: 20111010
  Serious: Yes (Other)
  Sender: FDA-Public Use
  Company Number: US-PFIZER INC-2011107540

PATIENT
  Sex: Female
  Weight: 107.3 kg

DRUGS (1)
  1. LYRICA [Suspect]
     Indication: FIBROMYALGIA
     Dosage: UNK
     Route: 048
     Dates: end: 20110501

REACTIONS (2)
  - DIABETES MELLITUS [None]
  - BLOOD CHOLESTEROL INCREASED [None]
